FAERS Safety Report 9223190 (Version 1)
Quarter: 2013Q2

REPORT INFORMATION
  Report Type: Spontaneous
  Country: FR (occurrence: FR)
  Receive Date: 20130410
  Receipt Date: 20130410
  Transmission Date: 20140414
  Serious: Yes (Hospitalization)
  Sender: FDA-Public Use
  Company Number: FR-ELI_LILLY_AND_COMPANY-FR201304001564

PATIENT
  Age: 69 Year
  Sex: Male

DRUGS (9)
  1. EFIENT [Suspect]
     Indication: ACUTE MYOCARDIAL INFARCTION
     Dosage: 10 MG, QD
     Route: 048
     Dates: start: 20121218, end: 20130117
  2. KARDEGIC [Concomitant]
     Dosage: 75 MG, UNK
     Dates: start: 20121218
  3. DIAMICRON [Concomitant]
     Dosage: 80 MG, UNK
     Dates: end: 20130117
  4. KENZEN [Concomitant]
     Dosage: 16 MG, UNK
  5. CARDENSIEL [Concomitant]
     Dosage: 5 MG, UNK
     Dates: start: 20121218
  6. CRESTOR [Concomitant]
     Dosage: 20 MG, UNK
     Dates: start: 20121218
  7. JANUVIA [Concomitant]
     Dosage: 100 MG, UNK
  8. PARIET [Concomitant]
     Dosage: 40 MG, UNK
  9. ZOPICLONE [Concomitant]
     Dosage: 7.5 MG, UNK

REACTIONS (2)
  - Renal failure acute [Recovered/Resolved]
  - Thrombocytopenia [Recovered/Resolved]
